FAERS Safety Report 20779617 (Version 3)
Quarter: 2023Q4

REPORT INFORMATION
  Report Type: Report from Study
  Country: AU (occurrence: None)
  Receive Date: 20220503
  Receipt Date: 20231208
  Transmission Date: 20240110
  Serious: Yes (Hospitalization)
  Sender: FDA-Public Use
  Company Number: AU-ROCHE-3086106

PATIENT
  Age: 42 Year
  Sex: Male
  Weight: 110 kg

DRUGS (65)
  1. GLOFITAMAB [Suspect]
     Active Substance: GLOFITAMAB
     Indication: Diffuse large B-cell lymphoma
     Dosage: ON 20/APR/2022, MOST RECENT DOSE GLOFITAMAB (10 MG) PRIOR TO ONSET OF CRS.?ON 27/JUN/2022, MOST RECE
     Route: 042
     Dates: start: 20220411
  2. POLATUZUMAB VEDOTIN [Suspect]
     Active Substance: POLATUZUMAB VEDOTIN
     Indication: Diffuse large B-cell lymphoma
     Dosage: ON 11/JUL/2022, MOST RECENT DOSE OF POLATUZUMAB VEDOTIN PRIOR TO SYNCOPE, FEBRILE NEUTROPENIA ONSET.
     Route: 042
     Dates: start: 20220404
  3. RITUXIMAB [Suspect]
     Active Substance: RITUXIMAB
     Indication: Diffuse large B-cell lymphoma
     Dosage: ON 04/APR/2022, MOST RECENT DOSE OF RITUXIMAB PRIOR TO CRS ONSET.?ON 11/JUL/2022, MOST RECENT DOSE O
     Route: 041
     Dates: start: 20220315
  4. CYCLOPHOSPHAMIDE [Suspect]
     Active Substance: CYCLOPHOSPHAMIDE
     Indication: Diffuse large B-cell lymphoma
     Dosage: ON 04/APR/2022, MOST RECENT DOSE OF CYCLOPHOSPHAMIDE PRIOR TO ONSET OF CRS.?ON 11/JUL/2022, MOST REC
     Route: 042
     Dates: start: 20220315
  5. DOXORUBICIN [Suspect]
     Active Substance: DOXORUBICIN
     Indication: Diffuse large B-cell lymphoma
     Dosage: ON 04/APR/2022, MOST RECENT DOSE OF DOXORUBICIN PRIOR TO ONSET OF CRS.?ON 11/JUL/2022, MOST RECENT D
     Route: 042
     Dates: start: 20220315
  6. PREDNISOLONE [Suspect]
     Active Substance: PREDNISOLONE
     Indication: Diffuse large B-cell lymphoma
     Dosage: ON 08/APR/2022, MOST RECENT DOSE OF PREDNISOLONE PRIOR TO ONSET OF CRS.?ON 15/JUL/2022, MOST RECENT
     Route: 048
     Dates: start: 20220315
  7. LYRICA [Concomitant]
     Active Substance: PREGABALIN
     Indication: Back pain
     Route: 048
     Dates: start: 2011
  8. SALPRAZ [Concomitant]
     Indication: Gastrooesophageal reflux disease
     Route: 048
     Dates: start: 2021
  9. ALLOPURINOL [Concomitant]
     Active Substance: ALLOPURINOL
     Route: 048
     Dates: start: 20220310
  10. VALACYCLOVIR HYDROCHLORIDE [Concomitant]
     Active Substance: VALACYCLOVIR HYDROCHLORIDE
     Route: 048
     Dates: start: 20220310
  11. METHOXYFLURANE [Concomitant]
     Active Substance: METHOXYFLURANE
     Dosage: 1 PUFF, INHALE, STAT
     Dates: start: 20220310
  12. BETAMETHASONE\CALCIPOTRIENE [Concomitant]
     Active Substance: BETAMETHASONE\CALCIPOTRIENE
     Indication: Psoriasis
     Dosage: DOSE 50 MCG/500 MCG
     Route: 061
     Dates: start: 202009
  13. ENSTILAR [Concomitant]
     Active Substance: BETAMETHASONE DIPROPIONATE\CALCIPOTRIENE HYDRATE
     Dosage: 10 MG TID PO PRN
     Dates: start: 20220327
  14. METOCLOPRAMIDE [Concomitant]
     Active Substance: METOCLOPRAMIDE
     Indication: Nausea
     Route: 048
     Dates: start: 20220327, end: 20220523
  15. METOCLOPRAMIDE [Concomitant]
     Active Substance: METOCLOPRAMIDE
     Route: 042
     Dates: start: 20220613
  16. ACETAMINOPHEN [Concomitant]
     Active Substance: ACETAMINOPHEN
     Indication: Back pain
     Route: 048
     Dates: start: 20220315
  17. ACETAMINOPHEN [Concomitant]
     Active Substance: ACETAMINOPHEN
     Route: 048
     Dates: start: 20220412
  18. ACETAMINOPHEN [Concomitant]
     Active Substance: ACETAMINOPHEN
     Dates: start: 20220420, end: 20220420
  19. CETIRIZINE [Concomitant]
     Active Substance: CETIRIZINE HYDROCHLORIDE
     Route: 048
     Dates: start: 20220315
  20. SODIUM CHLORIDE [Concomitant]
     Active Substance: SODIUM CHLORIDE
     Route: 042
     Dates: start: 20220315
  21. SODIUM CHLORIDE [Concomitant]
     Active Substance: SODIUM CHLORIDE
     Dosage: DOSE 125ML/HR
     Route: 042
     Dates: start: 20220718, end: 20220718
  22. PALONOSETRON [Concomitant]
     Active Substance: PALONOSETRON
     Dosage: 250 MCG
     Route: 042
     Dates: start: 20220315
  23. MAGNESIUM [Concomitant]
     Active Substance: MAGNESIUM
     Indication: Muscle spasms
     Dosage: 2 X 500 MG
     Route: 048
     Dates: start: 20220329
  24. TEMAZEPAM [Concomitant]
     Active Substance: TEMAZEPAM
     Indication: Insomnia
     Route: 048
     Dates: start: 20220315
  25. LIPEGFILGRASTIM [Concomitant]
     Active Substance: LIPEGFILGRASTIM
     Route: 058
     Dates: start: 20220407, end: 20220714
  26. CALCIUM CARBONATE\SODIUM ALGINATE\SODIUM BICARBONATE [Concomitant]
     Active Substance: CALCIUM CARBONATE\SODIUM ALGINATE\SODIUM BICARBONATE
     Indication: Gastrooesophageal reflux disease
     Dosage: 500 MG/267 MG,160 MG 10-20ML
     Route: 048
     Dates: start: 20220407, end: 202204
  27. ONDANSETRON [Concomitant]
     Active Substance: ONDANSETRON
     Indication: Nausea
     Dosage: 4 MG TDS SIL
     Dates: start: 20220410, end: 20220410
  28. ONDANSETRON [Concomitant]
     Active Substance: ONDANSETRON
     Dosage: 8 MG TDS PRN S/L
     Route: 060
     Dates: start: 20220523, end: 20220613
  29. ONDANSETRON [Concomitant]
     Active Substance: ONDANSETRON
     Route: 042
     Dates: start: 20220613
  30. ONDANSETRON [Concomitant]
     Active Substance: ONDANSETRON
     Route: 042
     Dates: start: 20220830, end: 20220831
  31. OXYCODONE [Concomitant]
     Active Substance: OXYCODONE
     Indication: Oropharyngeal pain
     Route: 048
     Dates: start: 20220412, end: 20220412
  32. OXYCODONE [Concomitant]
     Active Substance: OXYCODONE
     Route: 048
     Dates: start: 20220423
  33. ENOXAPARIN [Concomitant]
     Active Substance: ENOXAPARIN
     Dates: start: 20220410, end: 20220411
  34. ENOXAPARIN [Concomitant]
     Active Substance: ENOXAPARIN
     Route: 058
     Dates: start: 20220422, end: 20220426
  35. ENOXAPARIN [Concomitant]
     Active Substance: ENOXAPARIN
     Route: 048
     Dates: start: 20220423
  36. NOVORAPID [Concomitant]
     Active Substance: INSULIN ASPART
     Indication: Hyperglycaemia
     Dosage: 5 UNITS SIC
     Route: 058
     Dates: start: 20220411, end: 20220411
  37. NOVORAPID [Concomitant]
     Active Substance: INSULIN ASPART
     Dosage: 2 UNITS SIC
     Dates: start: 20220420
  38. NOVORAPID [Concomitant]
     Active Substance: INSULIN ASPART
     Dosage: 6 UNITS SIC
     Dates: start: 20220421
  39. INSULIN ASPART [Concomitant]
     Active Substance: INSULIN ASPART
     Indication: Hyperglycaemia
     Dosage: 10U OD S/C
     Dates: start: 20220421, end: 20220422
  40. INSULIN ASPART [Concomitant]
     Active Substance: INSULIN ASPART
     Dosage: 16 U?4 U
     Route: 058
     Dates: start: 20220427
  41. TRAMADOL [Concomitant]
     Active Substance: TRAMADOL\TRAMADOL HYDROCHLORIDE
     Indication: Headache
     Route: 048
     Dates: start: 20220422
  42. TRAMADOL [Concomitant]
     Active Substance: TRAMADOL\TRAMADOL HYDROCHLORIDE
     Route: 048
     Dates: start: 20220423, end: 20220426
  43. TRAMADOL [Concomitant]
     Active Substance: TRAMADOL\TRAMADOL HYDROCHLORIDE
     Route: 048
     Dates: start: 20220427, end: 20220520
  44. TRAMADOL [Concomitant]
     Active Substance: TRAMADOL\TRAMADOL HYDROCHLORIDE
     Route: 048
     Dates: start: 20220427, end: 20220520
  45. PIPERACILLIN SODIUM\TAZOBACTAM SODIUM [Concomitant]
     Active Substance: PIPERACILLIN SODIUM\TAZOBACTAM SODIUM
     Indication: Pyrexia
     Route: 042
     Dates: start: 20220422, end: 20220426
  46. LOPERAMIDE [Concomitant]
     Active Substance: LOPERAMIDE
     Indication: Diarrhoea
     Route: 048
     Dates: start: 20220504, end: 20220508
  47. LOPERAMIDE [Concomitant]
     Active Substance: LOPERAMIDE
     Route: 048
     Dates: start: 20220504, end: 20220508
  48. BUTYLSCOPOLAMINE BROMIDE [Concomitant]
     Active Substance: BUTYLSCOPOLAMINE BROMIDE
     Indication: Abdominal pain
     Route: 048
     Dates: start: 20220504, end: 20220508
  49. TRIMETHOPRIM [Concomitant]
     Active Substance: TRIMETHOPRIM
     Indication: Urinary tract infection
     Route: 048
     Dates: start: 20220519, end: 20220525
  50. BUPRENORPHINE [Concomitant]
     Active Substance: BUPRENORPHINE
     Indication: Musculoskeletal chest pain
     Dosage: 400 MCG PRN S/L
     Dates: start: 20220523
  51. BUPRENORPHINE [Concomitant]
     Active Substance: BUPRENORPHINE
     Dosage: 400 MCG PRN S/L
     Dates: start: 20220530
  52. BUPRENORPHINE [Concomitant]
     Active Substance: BUPRENORPHINE
     Dosage: 200-400 MCG PRN S/L
     Dates: start: 20220530
  53. AMOXICILLIN\CLAVULANATE POTASSIUM [Concomitant]
     Active Substance: AMOXICILLIN\CLAVULANATE POTASSIUM
     Indication: Pneumonia
     Dosage: 875/125 MG BD PO
     Route: 048
     Dates: start: 20220530, end: 20220605
  54. CEPHALEXIN [Concomitant]
     Active Substance: CEPHALEXIN
     Indication: Urinary tract infection
     Route: 048
     Dates: start: 20220614, end: 20220629
  55. CYCLIZINE [Concomitant]
     Active Substance: CYCLIZINE
     Indication: Nausea
     Route: 048
     Dates: start: 20220613
  56. CYCLIZINE [Concomitant]
     Active Substance: CYCLIZINE
     Route: 048
     Dates: start: 20220831, end: 20220901
  57. ACTILAX (AUSTRALIA) [Concomitant]
     Indication: Constipation
     Route: 048
     Dates: start: 202205
  58. PIPERACILLIN SODIUM\TAZOBACTAM SODIUM [Concomitant]
     Active Substance: PIPERACILLIN SODIUM\TAZOBACTAM SODIUM
     Indication: Febrile neutropenia
     Route: 042
     Dates: start: 20220718, end: 20220722
  59. LIDOCAINE HYDROCHLORIDE [Concomitant]
     Active Substance: DEXTROSE MONOHYDRATE\EPINEPHRINE\EPINEPHRINE BITARTRATE\LIDOCAINE\LIDOCAINE HYDROCHLORIDE\LIDOCAINE
     Indication: Throat irritation
     Route: 048
     Dates: start: 20220812, end: 20220812
  60. TIXAGEVIMAB [Concomitant]
     Active Substance: TIXAGEVIMAB
     Dosage: 150MG/1.5ML+150MG/1.5ML
     Route: 030
     Dates: start: 20220812, end: 20220812
  61. CEFEPIME [Concomitant]
     Active Substance: CEFEPIME HYDROCHLORIDE
     Route: 042
     Dates: start: 20220830, end: 20220830
  62. NALOXONE HYDROCHLORIDE\OXYCODONE HYDROCHLORIDE [Concomitant]
     Active Substance: NALOXONE HYDROCHLORIDE\OXYCODONE HYDROCHLORIDE
     Dosage: DOSE: 5/2.5MG
     Route: 048
     Dates: start: 20220830, end: 20220901
  63. IBUPROFEN [Concomitant]
     Active Substance: IBUPROFEN
     Indication: Inflammation
     Route: 048
     Dates: start: 20220830
  64. ASPIRIN [Concomitant]
     Active Substance: ASPIRIN
     Indication: Blood pressure measurement
     Route: 048
     Dates: start: 20220830
  65. TICAGRELOR [Concomitant]
     Active Substance: TICAGRELOR
     Route: 048
     Dates: start: 20220831

REACTIONS (3)
  - Syncope [Recovered/Resolved]
  - Cytokine release syndrome [Recovered/Resolved]
  - Febrile neutropenia [Recovered/Resolved]

NARRATIVE: CASE EVENT DATE: 20220422
